FAERS Safety Report 12171415 (Version 1)
Quarter: 2016Q1

REPORT INFORMATION
  Report Type: Spontaneous
  Country: US (occurrence: US)
  Receive Date: 20160311
  Receipt Date: 20160311
  Transmission Date: 20160526
  Serious: No
  Sender: FDA-Public Use
  Company Number: US-TEVA-641040USA

PATIENT
  Age: 81 Year
  Sex: Male

DRUGS (1)
  1. NUVIGIL [Suspect]
     Active Substance: ARMODAFINIL
     Dosage: 5 PILLS PER DAY
     Route: 065

REACTIONS (2)
  - Therapeutic response unexpected [Unknown]
  - Intercepted drug prescribing error [Unknown]
